FAERS Safety Report 5454812-6 (Version None)
Quarter: 2007Q3

REPORT INFORMATION
  Report Type: 
  Country: None (occurrence: None)
  Receive Date: 20070917
  Receipt Date: 20070906
  Transmission Date: 20080115
  Serious: No
  Sender: FDA-Public Use
  Company Number: US-BOEHRINGER INGELHEIM PHARMACEUTICALS, INC.-2007-BP-20675BP

PATIENT

DRUGS (3)
  1. APTIVUS/RITONAVIR CAPSULES [Suspect]
     Indication: HIV INFECTION
     Route: 048
  2. T-20 [Concomitant]
  3. RALTEGRAVIR POTASSIUM [Concomitant]

REACTIONS (1)
  - LIVER FUNCTION TEST ABNORMAL [None]
